FAERS Safety Report 20670532 (Version 1)
Quarter: 2022Q2

REPORT INFORMATION
  Report Type: Spontaneous
  Country: US (occurrence: None)
  Receive Date: 20220402
  Receipt Date: 20220402
  Transmission Date: 20220720
  Serious: Yes (Hospitalization)
  Sender: FDA-Public Use
  Company Number: None

PATIENT
  Sex: Male
  Weight: 65.9 kg

DRUGS (4)
  1. CISPLATIN [Suspect]
     Active Substance: CISPLATIN
  2. IFOSFAMIDE [Concomitant]
     Active Substance: IFOSFAMIDE
  3. TAXOL [Concomitant]
     Active Substance: PACLITAXEL
  4. PEGFILGRASTIM (NEULASTA) [Concomitant]

REACTIONS (5)
  - Pyrexia [None]
  - Illness [None]
  - General physical health deterioration [None]
  - Febrile neutropenia [None]
  - Sepsis [None]

NARRATIVE: CASE EVENT DATE: 20220325
